FAERS Safety Report 7656725-8 (Version None)
Quarter: 2011Q3

REPORT INFORMATION
  Report Type: 
  Country: None (occurrence: None)
  Receive Date: 20110801
  Receipt Date: 20110715
  Transmission Date: 20111222
  Serious: Yes (Hospitalization, Other)
  Sender: FDA-Public Use
  Company Number: 2011MA008964

PATIENT
  Age: 44 Year
  Sex: Female

DRUGS (3)
  1. PHENYTOIN [Suspect]
     Indication: CONVULSION PROPHYLAXIS
     Dosage: 150 MG; Q8H
  2. CLONIDINE [Suspect]
     Indication: PRODUCT USED FOR UNKNOWN INDICATION
     Dosage: 0.3 MG, Q8H,
  3. HYDRALAZINE HCL [Suspect]
     Indication: BLOOD PRESSURE ABNORMAL
     Dosage: 50 MGL, Q6H,

REACTIONS (16)
  - DRUG RASH WITH EOSINOPHILIA AND SYSTEMIC SYMPTOMS [None]
  - THROMBOCYTOPENIA [None]
  - JAUNDICE [None]
  - THROMBOTIC THROMBOCYTOPENIC PURPURA [None]
  - FACE OEDEMA [None]
  - BLOOD LACTATE DEHYDROGENASE INCREASED [None]
  - NOSOCOMIAL INFECTION [None]
  - LABILE BLOOD PRESSURE [None]
  - PYREXIA [None]
  - EOSINOPHILIA [None]
  - NORMOCHROMIC NORMOCYTIC ANAEMIA [None]
  - OLIGURIA [None]
  - PSEUDOMONAS INFECTION [None]
  - INTERNATIONAL NORMALISED RATIO INCREASED [None]
  - DERMATITIS EXFOLIATIVE [None]
  - SEPSIS [None]
